FAERS Safety Report 21465483 (Version 2)
Quarter: 2022Q4

REPORT INFORMATION
  Report Type: Spontaneous
  Country: ES (occurrence: ES)
  Receive Date: 20221017
  Receipt Date: 20221128
  Transmission Date: 20230112
  Serious: Yes (Hospitalization, Other)
  Sender: FDA-Public Use
  Company Number: ES-009507513-2208ESP009917

PATIENT
  Age: 52 Year
  Sex: Male
  Weight: 93 kg

DRUGS (10)
  1. CISPLATIN [Suspect]
     Active Substance: CISPLATIN
     Indication: Head and neck cancer metastatic
     Dosage: 100, MG/M2, 210 MILLIGRAM, EVERY 21 DAYS
     Route: 042
     Dates: start: 20220421, end: 20220421
  2. CISPLATIN [Suspect]
     Active Substance: CISPLATIN
     Dosage: 100 MG/M2, 210 MILLIGRAM, EVERY 21 DAYS
     Route: 042
     Dates: start: 20220512, end: 20220512
  3. FLUOROURACIL [Suspect]
     Active Substance: FLUOROURACIL
     Indication: Head and neck cancer metastatic
     Dosage: UNK
     Route: 065
     Dates: start: 20220512, end: 20220512
  4. FLUOROURACIL [Suspect]
     Active Substance: FLUOROURACIL
     Dosage: UNK
     Route: 065
     Dates: start: 20220421, end: 20220421
  5. FLUOROURACIL [Suspect]
     Active Substance: FLUOROURACIL
     Dosage: UNK
     Route: 065
     Dates: start: 20220602, end: 20220602
  6. CARBOPLATIN [Suspect]
     Active Substance: CARBOPLATIN
     Indication: Head and neck cancer metastatic
     Dosage: UNK
     Route: 065
     Dates: start: 20220612, end: 20220612
  7. KEYTRUDA [Suspect]
     Active Substance: PEMBROLIZUMAB
     Indication: Head and neck cancer metastatic
     Dosage: 200MG, EVERY 21 DAYS
     Route: 065
     Dates: start: 20220602, end: 20220602
  8. KEYTRUDA [Suspect]
     Active Substance: PEMBROLIZUMAB
     Dosage: 200MG, EVERY 21 DAYS
     Route: 065
     Dates: start: 20220512, end: 20220512
  9. KEYTRUDA [Suspect]
     Active Substance: PEMBROLIZUMAB
     Dosage: 200 MILLIGRAM, EVERY 21 DAYS
     Route: 065
     Dates: start: 20220421, end: 20220421
  10. AMLODIPINE\HYDROCHLOROTHIAZIDE\VALSARTAN [Concomitant]
     Active Substance: AMLODIPINE\HYDROCHLOROTHIAZIDE\VALSARTAN
     Indication: Hypertension
     Dosage: 1 DOSAGE FORM, 1 TABLET, QD; 320/10/25
     Route: 065

REACTIONS (3)
  - Renal failure [Recovering/Resolving]
  - Nephropathy toxic [Unknown]
  - Hypokalaemia [Unknown]

NARRATIVE: CASE EVENT DATE: 20220601
